FAERS Safety Report 6889587-7 (Version None)
Quarter: 2010Q3

REPORT INFORMATION
  Report Type: 
  Country: None (occurrence: None)
  Receive Date: 20100730
  Receipt Date: 20080319
  Transmission Date: 20110219
  Serious: No
  Sender: FDA-Public Use
  Company Number: US-PFIZER INC-2008015697

PATIENT
  Age: 33 Year
  Sex: Male
  Weight: 68.04 kg

DRUGS (2)
  1. LIPITOR [Suspect]
  2. ALLEGRA [Concomitant]

REACTIONS (4)
  - ANXIETY [None]
  - FEELING JITTERY [None]
  - INSOMNIA [None]
  - RESTLESSNESS [None]
